FAERS Safety Report 20127952 (Version 2)
Quarter: 2021Q4

REPORT INFORMATION
  Report Type: Report from Study
  Country: CA (occurrence: CA)
  Receive Date: 20211129
  Receipt Date: 20211202
  Transmission Date: 20220303
  Serious: No
  Sender: FDA-Public Use
  Company Number: CA-JNJFOC-20211136885

PATIENT
  Age: 85 Year
  Sex: Female

DRUGS (2)
  1. SIMPONI [Suspect]
     Active Substance: GOLIMUMAB
     Indication: Psoriatic arthropathy
     Dosage: 50.00 MG / 0.50 ML
     Route: 058
     Dates: start: 20170728
  2. SIMPONI [Suspect]
     Active Substance: GOLIMUMAB

REACTIONS (2)
  - Drug delivery system malfunction [Unknown]
  - Product dose omission issue [Unknown]
